FAERS Safety Report 6978492-3 (Version None)
Quarter: 2010Q3

REPORT INFORMATION
  Report Type: 
  Country: None (occurrence: None)
  Receive Date: 20100913
  Receipt Date: 20100903
  Transmission Date: 20110219
  Serious: Yes (Disabling, Other)
  Sender: FDA-Public Use
  Company Number: US-BAYER-US-2007-010771

PATIENT
  Age: 55 Year
  Sex: Female
  Weight: 74 kg

DRUGS (11)
  1. BETASERON [Suspect]
     Indication: RELAPSING-REMITTING MULTIPLE SCLEROSIS
     Dosage: TOTAL DAILY DOSE: 8 MIU
     Route: 058
     Dates: start: 20060401
  2. BETASERON [Suspect]
     Dosage: TOTAL DAILY DOSE: 8 MIU
     Route: 058
  3. PROVIGIL [Concomitant]
  4. FOSAMAX [Concomitant]
  5. DIOVANE [Concomitant]
  6. LOVASTATIN [Concomitant]
  7. ZETIA [Concomitant]
  8. ASPIRIN [Concomitant]
     Dosage: 81 MG, UNK
  9. ZANAFLEX [Concomitant]
  10. VITAMIN E [Concomitant]
     Dosage: ONE A DAY
  11. OYSTER SHELL CALCIUM WITH VITAMIN D [Concomitant]

REACTIONS (7)
  - ABASIA [None]
  - ANKLE FRACTURE [None]
  - DIABETES INSIPIDUS [None]
  - FALL [None]
  - FATIGUE [None]
  - POLYURIA [None]
  - RENAL DISORDER [None]
